FAERS Safety Report 7228569-2 (Version None)
Quarter: 2011Q1

REPORT INFORMATION
  Report Type: 
  Country: None (occurrence: None)
  Receive Date: 20110117
  Receipt Date: 20110106
  Transmission Date: 20110831
  Serious: No
  Sender: FDA-Public Use
  Company Number: US-BIOGENIDEC-2006BI005503

PATIENT
  Sex: Male
  Weight: 90 kg

DRUGS (2)
  1. TYSABRI [Suspect]
     Route: 042
     Dates: start: 20061121
  2. TYSABRI [Suspect]
     Indication: MULTIPLE SCLEROSIS
     Route: 042
     Dates: start: 20050210, end: 20050210

REACTIONS (6)
  - ASTHENIA [None]
  - BALANCE DISORDER [None]
  - POOR VENOUS ACCESS [None]
  - ANTIBODY TEST POSITIVE [None]
  - GAIT DISTURBANCE [None]
  - RASH MACULAR [None]
